FAERS Safety Report 10277605 (Version 1)
Quarter: 2014Q3

REPORT INFORMATION
  Report Type: Spontaneous
  Country: IT (occurrence: IT)
  Receive Date: 20140704
  Receipt Date: 20140704
  Transmission Date: 20150326
  Serious: Yes (Hospitalization)
  Sender: FDA-Public Use
  Company Number: IT-INDICUS PHARMA-000265

PATIENT
  Age: 76 Year
  Sex: Male

DRUGS (7)
  1. HYDROCHLOROTHIAZIDE /OLMESARTAN [Concomitant]
     Active Substance: HYDROCHLOROTHIAZIDE\OLMESARTAN MEDOXOMIL
     Dosage: 20/12.5 MG
  2. METFORMIN [Suspect]
     Active Substance: METFORMIN HYDROCHLORIDE
     Indication: TYPE 2 DIABETES MELLITUS
  3. LEVOFLOXACIN/LEVOFLOXACIN MESYLATE [Suspect]
     Active Substance: LEVOFLOXACIN
     Indication: SEPSIS
  4. BISOPROLOL [Concomitant]
     Active Substance: BISOPROLOL
  5. GLICLAZIDE [Concomitant]
     Active Substance: GLICLAZIDE
     Indication: TYPE 2 DIABETES MELLITUS
  6. INDAPAMIDE/INDAPAMIDE HEMIHYDRATE [Concomitant]
     Active Substance: INDAPAMIDE
  7. SIMVASTATIN. [Concomitant]
     Active Substance: SIMVASTATIN

REACTIONS (11)
  - Lactic acidosis [Unknown]
  - Metabolic acidosis [None]
  - Blood pressure increased [None]
  - Hypoglycaemia [Unknown]
  - Toxicity to various agents [Recovered/Resolved]
  - Enterococcal infection [Unknown]
  - Sepsis [Unknown]
  - Clostridium difficile colitis [Unknown]
  - Disorientation [None]
  - Escherichia urinary tract infection [Unknown]
  - Tubulointerstitial nephritis [Recovered/Resolved]
